FAERS Safety Report 9727734 (Version 2)
Quarter: 2014Q1

REPORT INFORMATION
  Report Type: Report from Study
  Country: JP (occurrence: JP)
  Receive Date: 20131203
  Receipt Date: 20140128
  Transmission Date: 20141002
  Serious: Yes (Other)
  Sender: FDA-Public Use
  Company Number: JP-VERTEX PHARMACEUTICALS INC-2013-011472

PATIENT
  Age: 44 Year
  Sex: Male

DRUGS (13)
  1. VX-950 (TELAPREVIR) [Suspect]
     Indication: CHRONIC HEPATITIS C
     Dosage: 1500 MG, QD
     Route: 048
     Dates: start: 20120831, end: 20121122
  2. RIBAVIRIN [Suspect]
     Indication: CHRONIC HEPATITIS C
     Dosage: 800 MG, QD
     Route: 048
     Dates: start: 20120831, end: 20120920
  3. RIBAVIRIN [Suspect]
     Dosage: 600 MG, QD
     Route: 048
     Dates: start: 20120921
  4. PEGINTERFERON ALFA-2B [Concomitant]
     Dosage: 1.5 ?G/KG, QW
     Route: 058
     Dates: start: 20120801, end: 20121004
  5. PEGINTERFERON ALFA-2B [Concomitant]
     Dosage: 1.2 ?G/KG, QW
     Route: 058
     Dates: start: 20121005
  6. NAUZELIN [Concomitant]
     Dosage: 30 MG, QD
     Route: 048
     Dates: start: 20120901
  7. RIKKUNSHITO [Concomitant]
     Dosage: 7.5 G, QD
     Route: 048
     Dates: start: 20120901
  8. KENALOG [Concomitant]
     Dosage: 5 G, QD
     Route: 051
     Dates: start: 20120907
  9. LOXONIN [Concomitant]
     Dosage: 60 MG, PRN
     Route: 048
     Dates: start: 20120908
  10. LOXONIN [Concomitant]
     Dosage: 60 MG, QD
     Route: 048
  11. MUCOSTA [Concomitant]
     Dosage: 100 MG, PRN
     Route: 048
     Dates: start: 20120908
  12. MUCOSTA [Concomitant]
     Dosage: 100 MG, QD
     Route: 048
  13. MAGLAX [Concomitant]
     Dosage: 500 MG, QD
     Route: 048
     Dates: start: 20120911

REACTIONS (1)
  - Neutrophil count decreased [Recovered/Resolved]
